FAERS Safety Report 9683954 (Version 1)
Quarter: 2013Q4

REPORT INFORMATION
  Report Type: Spontaneous
  Country: US (occurrence: US)
  Receive Date: 20131112
  Receipt Date: 20131112
  Transmission Date: 20140711
  Serious: Yes (Death, Other)
  Sender: FDA-Public Use
  Company Number: US-PFIZER INC-2013320654

PATIENT
  Age: 43 Year
  Sex: Male

DRUGS (4)
  1. INLYTA [Suspect]
     Indication: METASTATIC RENAL CELL CARCINOMA
     Dosage: UNK
     Dates: start: 2013, end: 2013
  2. METOPROLOL [Concomitant]
     Indication: HYPERTENSION
     Dosage: UNK
  3. MORPHINE [Concomitant]
     Indication: ANALGESIC THERAPY
     Dosage: UNK
  4. ATIVAN [Concomitant]
     Dosage: UNK

REACTIONS (4)
  - Disease progression [Fatal]
  - Metastatic renal cell carcinoma [Fatal]
  - Electrocardiogram QT prolonged [Recovered/Resolved]
  - Pleural effusion [Recovered/Resolved]
